FAERS Safety Report 5406507-2 (Version None)
Quarter: 2007Q3

REPORT INFORMATION
  Report Type: 
  Country: None (occurrence: None)
  Receive Date: 20070806
  Receipt Date: 20070730
  Transmission Date: 20080115
  Serious: Yes (Disabling, Other)
  Sender: FDA-Public Use
  Company Number: DE-PFIZER INC-2007039907

PATIENT
  Sex: Female

DRUGS (7)
  1. LYRICA [Suspect]
     Indication: NEURALGIA
     Route: 048
     Dates: start: 20070412, end: 20070422
  2. LAMOTRIGINE [Concomitant]
  3. CONCOR [Concomitant]
  4. MONO MACK [Concomitant]
  5. NEXIUM [Concomitant]
  6. IBUPROFEN [Concomitant]
  7. ALL OTHER THERAPEUTIC PRODUCTS [Concomitant]

REACTIONS (2)
  - STRABISMUS [None]
  - VITH NERVE PARALYSIS [None]
